FAERS Safety Report 20575490 (Version 1)
Quarter: 2022Q1

REPORT INFORMATION
  Report Type: Spontaneous
  Country: US (occurrence: US)
  Receive Date: 20220310
  Receipt Date: 20220310
  Transmission Date: 20220424
  Serious: Yes (Life-Threatening)
  Sender: FDA-Public Use
  Company Number: US-CELLTRION INC.-2022US001926

PATIENT

DRUGS (2)
  1. INFLECTRA [Suspect]
     Active Substance: INFLIXIMAB-DYYB
     Indication: Crohn^s disease
     Dosage: LAST INFUSION WAS IN LATE DEC 2021, EVERY TWO MONTHS
     Route: 065
  2. INFLECTRA [Suspect]
     Active Substance: INFLIXIMAB-DYYB
     Dosage: ON THE INFLECTRA FOR 6 MONTHS TO A YEAR
     Route: 065

REACTIONS (7)
  - Pain [Unknown]
  - Loss of personal independence in daily activities [Unknown]
  - Condition aggravated [Unknown]
  - Abdominal pain upper [Unknown]
  - Insurance issue [Unknown]
  - Treatment delayed [Unknown]
  - Off label use [Unknown]
